FAERS Safety Report 4589381-6 (Version None)
Quarter: 2005Q1

REPORT INFORMATION
  Report Type: 
  Country: None (occurrence: None)
  Receive Date: 20050223
  Receipt Date: 20050214
  Transmission Date: 20050727
  Serious: Yes (Hospitalization)
  Sender: FDA-Public Use
  Company Number: FR-BRISTOL-MYERS SQUIBB COMPANY-12862306

PATIENT
  Age: 75 Year
  Sex: Male

DRUGS (11)
  1. COUMADIN [Suspect]
     Route: 048
     Dates: start: 20040815
  2. ALDACTONE [Suspect]
     Route: 048
     Dates: start: 20040815, end: 20041219
  3. TADENAN [Suspect]
     Route: 048
     Dates: end: 20041223
  4. LODALES [Suspect]
     Route: 048
     Dates: end: 20041225
  5. AVODART [Suspect]
     Route: 048
     Dates: end: 20041225
  6. FUROSEMIDE [Concomitant]
  7. KREDEX [Concomitant]
  8. TRIATEC [Concomitant]
  9. OMEPRAZOLE [Concomitant]
  10. BRONCHODUAL [Concomitant]
  11. OMIX [Concomitant]

REACTIONS (4)
  - CONDITION AGGRAVATED [None]
  - CONTUSION [None]
  - PURPURA [None]
  - THROMBOCYTOPENIA [None]
